FAERS Safety Report 9089403 (Version 1)
Quarter: 2013Q1

REPORT INFORMATION
  Report Type: Spontaneous
  Country: US (occurrence: US)
  Receive Date: 20130201
  Receipt Date: 20130201
  Transmission Date: 20140127
  Serious: Yes (Other)
  Sender: FDA-Public Use
  Company Number: US-BAYER-2013-010756

PATIENT
  Age: 88 Year
  Sex: Female

DRUGS (5)
  1. BAYER GENUINE ASPIRIN ORIGINAL STRENGTH [Suspect]
  2. CITALOPRAM HYDROBROMIDE [Concomitant]
  3. PLAVIX [Concomitant]
  4. HYDROCODONE [Concomitant]
  5. SOLUTIONS FOR PARENTERAL NUTRITION [Concomitant]

REACTIONS (3)
  - Loss of control of legs [None]
  - Fall [None]
  - Upper limb fracture [None]
